FAERS Safety Report 5507538-4 (Version None)
Quarter: 2007Q4

REPORT INFORMATION
  Report Type: 
  Country: None (occurrence: None)
  Receive Date: 20071106
  Receipt Date: 20071026
  Transmission Date: 20080405
  Serious: Yes (Other)
  Sender: FDA-Public Use
  Company Number: GB-AVENTIS-200719939GDDC

PATIENT
  Age: 51 Year
  Sex: Female
  Weight: 60 kg

DRUGS (2)
  1. METRONIDAZOLE [Suspect]
     Route: 048
     Dates: start: 20070927, end: 20070929
  2. VITAMINS NOS [Concomitant]

REACTIONS (4)
  - MALAISE [None]
  - PAIN [None]
  - RASH GENERALISED [None]
  - VOMITING [None]
